FAERS Safety Report 5889607-2 (Version None)
Quarter: 2008Q3

REPORT INFORMATION
  Report Type: 
  Country: None (occurrence: None)
  Receive Date: 20080919
  Receipt Date: 20080912
  Transmission Date: 20090109
  Serious: Yes (Hospitalization)
  Sender: FDA-Public Use
  Company Number: A0748417A

PATIENT
  Age: 66 Year
  Sex: Female
  Weight: 61.4 kg

DRUGS (2)
  1. AVANDIA [Suspect]
     Dosage: 4MG PER DAY
     Route: 065
     Dates: start: 20040101, end: 20070101
  2. AVANDAMET [Suspect]
     Route: 065
     Dates: start: 20031216, end: 20050101

REACTIONS (3)
  - ARTERIOSCLEROSIS [None]
  - HEART INJURY [None]
  - MYOCARDIAL INFARCTION [None]
